FAERS Safety Report 7195609-9 (Version None)
Quarter: 2010Q4

REPORT INFORMATION
  Report Type: 
  Country: None (occurrence: None)
  Receive Date: 20101223
  Receipt Date: 20101116
  Transmission Date: 20110411
  Serious: Yes (Hospitalization)
  Sender: FDA-Public Use
  Company Number: FR-MERCK-1012FRA00141

PATIENT
  Age: 50 Year
  Sex: Male
  Weight: 69 kg

DRUGS (2)
  1. JANUVIA [Suspect]
     Indication: DIABETES MELLITUS
     Route: 048
  2. METFORMIN [Concomitant]
     Indication: DIABETES MELLITUS
     Route: 048
     Dates: start: 20030101

REACTIONS (1)
  - COLONOSCOPY [None]
